FAERS Safety Report 6969865-3 (Version None)
Quarter: 2010Q3

REPORT INFORMATION
  Report Type: 
  Country: None (occurrence: None)
  Receive Date: 20100902
  Receipt Date: 20100818
  Transmission Date: 20110219
  Serious: Yes (Disabling)
  Sender: FDA-Public Use
  Company Number: 00000290

PATIENT
  Sex: Female

DRUGS (3)
  1. CITALOPRAM HYDROBROMIDE [Suspect]
     Dosage: 3
  2. REBIF [Concomitant]
  3. OCCASIONAL IBUPROFEN [Concomitant]

REACTIONS (6)
  - ALOPECIA [None]
  - FACE INJURY [None]
  - GUN SHOT WOUND [None]
  - HALLUCINATION [None]
  - HYPERTENSION [None]
  - SUICIDE ATTEMPT [None]
